FAERS Safety Report 8976339 (Version 1)
Quarter: 2012Q4

REPORT INFORMATION
  Report Type: Report from Study
  Country: CA (occurrence: CA)
  Receive Date: 20121220
  Receipt Date: 20121220
  Transmission Date: 20130627
  Serious: Yes (Other)
  Sender: FDA-Public Use
  Company Number: CA-ROCHE-1166808

PATIENT
  Age: 63 Year
  Sex: Male
  Weight: 111.14 kg

DRUGS (1)
  1. OMALIZUMAB [Suspect]
     Indication: ASTHMA
     Route: 065
     Dates: start: 20060917, end: 20070108

REACTIONS (6)
  - Gastroenteritis viral [Recovered/Resolved]
  - Haematemesis [Recovered/Resolved]
  - Asthma [Not Recovered/Not Resolved]
  - Respiratory tract congestion [Unknown]
  - Vomiting [Not Recovered/Not Resolved]
  - Drug ineffective [Unknown]
